FAERS Safety Report 10069050 (Version 2)
Quarter: 2014Q2

REPORT INFORMATION
  Report Type: Spontaneous
  Country: IT (occurrence: IT)
  Receive Date: 20140409
  Receipt Date: 20140416
  Transmission Date: 20141212
  Serious: Yes (Life-Threatening)
  Sender: FDA-Public Use
  Company Number: IT-ACTAVIS-2014-06853

PATIENT
  Age: 76 Year
  Sex: Male

DRUGS (2)
  1. OXALIPLATIN (UNKNOWN) [Suspect]
     Indication: PANCREATIC CARCINOMA
     Dosage: 85 MG, CYCLICAL
     Route: 042
     Dates: start: 20130730, end: 20140320
  2. GEMCITABINE [Concomitant]
     Indication: PANCREATIC CARCINOMA
     Dosage: 1700 MG, UNK
     Route: 042
     Dates: start: 20130730, end: 20140320

REACTIONS (3)
  - Dyspnoea [Recovered/Resolved]
  - Hypersensitivity [Recovered/Resolved]
  - Off label use [Recovered/Resolved]
